FAERS Safety Report 20393477 (Version 1)
Quarter: 2022Q1

REPORT INFORMATION
  Report Type: Report from Study
  Country: US (occurrence: US)
  Receive Date: 20220128
  Receipt Date: 20220128
  Transmission Date: 20220423
  Serious: Yes (Death)
  Sender: FDA-Public Use
  Company Number: US-BAUSCH-BL-2022-002666

PATIENT
  Age: 81 Year
  Sex: Male

DRUGS (1)
  1. TARGRETIN [Suspect]
     Active Substance: BEXAROTENE
     Indication: Product used for unknown indication
     Route: 065

REACTIONS (2)
  - Cardiac failure [Fatal]
  - Renal failure [Fatal]
